FAERS Safety Report 14163113 (Version 2)
Quarter: 2017Q4

REPORT INFORMATION
  Report Type: Report from Study
  Country: DE (occurrence: DE)
  Receive Date: 20171106
  Receipt Date: 20171214
  Transmission Date: 20180321
  Serious: Yes (Hospitalization, Other)
  Sender: FDA-Public Use
  Company Number: DE-TEVA-820596GER

PATIENT
  Age: 36 Year
  Sex: Female
  Weight: 64 kg

DRUGS (1)
  1. COPAXONE [Suspect]
     Active Substance: GLATIRAMER ACETATE
     Indication: MULTIPLE SCLEROSIS
     Dosage: 20 MILLIGRAM DAILY;
     Route: 058
     Dates: start: 20120101

REACTIONS (1)
  - Necrosis [Unknown]

NARRATIVE: CASE EVENT DATE: 20171024
